FAERS Safety Report 18670950 (Version 1)
Quarter: 2020Q4

REPORT INFORMATION
  Report Type: Spontaneous
  Country: FR (occurrence: FR)
  Receive Date: 20201228
  Receipt Date: 20201228
  Transmission Date: 20210114
  Serious: Yes (Death)
  Sender: FDA-Public Use
  Company Number: FR-TEVA-2020-FR-1862291

PATIENT
  Age: 65 Year
  Sex: Male
  Weight: 68 kg

DRUGS (6)
  1. ALIMTA [Suspect]
     Active Substance: PEMETREXED DISODIUM
     Indication: BRONCHIAL CARCINOMA
     Dosage: 905 MILLIGRAM
     Route: 042
     Dates: start: 20201103, end: 20201103
  2. DUROGESIC [Suspect]
     Active Substance: FENTANYL
     Indication: PAIN
     Dosage: 37 MICROGRAM
     Route: 062
     Dates: start: 20201027
  3. KEYTRUDA [Suspect]
     Active Substance: PEMBROLIZUMAB
     Indication: BRONCHIAL CARCINOMA
     Dosage: 200 MILLIGRAM
     Route: 042
     Dates: start: 20201103, end: 20201103
  4. KARDEGIC [Suspect]
     Active Substance: ASPIRIN DL-LYSINE
     Indication: PRODUCT USED FOR UNKNOWN INDICATION
     Dosage: 1 DOSAGE FORM
     Route: 048
     Dates: end: 20201120
  5. OXYNORM [Suspect]
     Active Substance: OXYCODONE HYDROCHLORIDE
     Indication: PAIN
     Dosage: 1 DOSAGE FORM
     Route: 048
     Dates: start: 20201027
  6. METFORMINE [Suspect]
     Active Substance: METFORMIN HYDROCHLORIDE
     Indication: DIABETES MELLITUS
     Dosage: 3 GRAM
     Route: 048
     Dates: end: 20201120

REACTIONS (4)
  - Febrile bone marrow aplasia [Fatal]
  - Haemorrhage [Fatal]
  - Acute kidney injury [Fatal]
  - Diarrhoea [Fatal]

NARRATIVE: CASE EVENT DATE: 202011
